FAERS Safety Report 23689909 (Version 1)
Quarter: 2024Q2

REPORT INFORMATION
  Report Type: Spontaneous
  Country: US (occurrence: US)
  Receive Date: 20240401
  Receipt Date: 20240401
  Transmission Date: 20240716
  Serious: No
  Sender: FDA-Public Use
  Company Number: US-TEVA-VS-3160442

PATIENT
  Sex: Female

DRUGS (1)
  1. CLONAZEPAM [Suspect]
     Active Substance: CLONAZEPAM
     Indication: Anxiety
     Dosage: TIME INTERVAL: 0.33333333 DAYS
     Route: 065
     Dates: start: 2014

REACTIONS (5)
  - Drug ineffective [Unknown]
  - Product physical issue [Unknown]
  - Hyperhidrosis [Unknown]
  - Heart rate increased [Unknown]
  - Panic attack [Unknown]

NARRATIVE: CASE EVENT DATE: 20231201
